FAERS Safety Report 8858510 (Version 4)
Quarter: 2013Q2

REPORT INFORMATION
  Report Type: Report from Study
  Country: FR (occurrence: FR)
  Receive Date: 20121024
  Receipt Date: 20130514
  Transmission Date: 20140414
  Serious: Yes (Hospitalization, Other)
  Sender: FDA-Public Use
  Company Number: PHHO2012FR015333

PATIENT
  Age: 48 Year
  Sex: Male

DRUGS (4)
  1. AMN107 [Suspect]
     Indication: CHRONIC MYELOID LEUKAEMIA
     Dosage: 300 MG, BID
     Route: 048
     Dates: start: 20110519, end: 20121013
  2. AMN107 [Suspect]
     Dosage: 300 MG, BID
     Route: 048
     Dates: start: 20121018, end: 20121127
  3. PEGASYS [Suspect]
     Indication: CHRONIC MYELOID LEUKAEMIA
     Dosage: 45 UG, QW2
     Route: 058
     Dates: start: 20110519, end: 20120721
  4. ANTIHYPERTENSIVES [Concomitant]

REACTIONS (1)
  - Angina pectoris [Not Recovered/Not Resolved]
